FAERS Safety Report 8784708 (Version 1)
Quarter: 2012Q4

REPORT INFORMATION
  Report Type: 
  Country: US (occurrence: US)
  Receive Date: 20120914
  Receipt Date: 20120914
  Transmission Date: 20130627
  Serious: Yes (Other)
  Sender: FDA-Public Use
  Company Number: US-PFIZER INC-2012223106

PATIENT
  Age: 71 Year
  Sex: Female

DRUGS (5)
  1. SPIRONOLACTONE [Suspect]
     Dosage: 25 mg, 1x/day
     Route: 048
  2. SOTALOL [Suspect]
     Dosage: 120 mg, daily
     Route: 048
  3. MULTAQ [Suspect]
     Indication: ATRIAL FIBRILLATION
     Dosage: 400 mg, 2x/day
     Route: 048
  4. ASPIRIN [Concomitant]
  5. ACTONEL [Concomitant]

REACTIONS (13)
  - Suicidal ideation [Unknown]
  - Dyspnoea [Unknown]
  - Extrasystoles [Unknown]
  - Heart rate increased [Unknown]
  - Palpitations [Unknown]
  - Tremor [Unknown]
  - Hyperhidrosis [Unknown]
  - Feeling hot [Unknown]
  - Asthenia [Unknown]
  - Dysgeusia [Unknown]
  - Fatigue [Unknown]
  - Vomiting [Unknown]
  - Chromaturia [Unknown]
